FAERS Safety Report 11470385 (Version 1)
Quarter: 2015Q3

REPORT INFORMATION
  Report Type: Report from Study
  Country: TR (occurrence: TR)
  Receive Date: 20150908
  Receipt Date: 20150908
  Transmission Date: 20151125
  Serious: Yes (Death)
  Sender: FDA-Public Use
  Company Number: TR-SA-2015SA135737

PATIENT

DRUGS (3)
  1. DOCETAXEL. [Suspect]
     Active Substance: DOCETAXEL
     Indication: GASTRIC CANCER
     Dosage: 75 MG/M2 INTRAVENOUS INFUSION ON DAY 1 EVERY 21 DAYS
     Route: 042
  2. FLUOROURACIL. [Suspect]
     Active Substance: FLUOROURACIL
     Indication: GASTRIC CANCER
     Dosage: 750 MG/M2/DAY AS CONTINUOUS INFUSION FOR 5 DAYS REPEATED EVERY 3 WEEK
     Route: 065
  3. CISPLATIN. [Suspect]
     Active Substance: CISPLATIN
     Indication: GASTRIC CANCER
     Dosage: 75 MG/M2 INTRAVENOUS INFUSION ON DAY 1 EVERY 21 DAYS
     Route: 042

REACTIONS (1)
  - Death [Fatal]
